FAERS Safety Report 8150981-8 (Version None)
Quarter: 2012Q1

REPORT INFORMATION
  Report Type: 
  Country: None (occurrence: None)
  Receive Date: 20120220
  Receipt Date: 20120214
  Transmission Date: 20120608
  Serious: Yes (Death, Hospitalization)
  Sender: FDA-Public Use
  Company Number: US-ASTRAZENECA-2012SE10327

PATIENT
  Age: 72 Year
  Sex: Female

DRUGS (1)
  1. BRILINTA [Suspect]
     Route: 048

REACTIONS (4)
  - SHOCK [None]
  - FALL [None]
  - HYPERTENSION [None]
  - MYOCARDIAL INFARCTION [None]
